FAERS Safety Report 5598827-6 (Version None)
Quarter: 2008Q1

REPORT INFORMATION
  Report Type: 
  Country: None (occurrence: None)
  Receive Date: 20080122
  Receipt Date: 20080111
  Transmission Date: 20080703
  Serious: Yes (Other)
  Sender: FDA-Public Use
  Company Number: CA-ELI_LILLY_AND_COMPANY-CA200712003299

PATIENT
  Age: 39 Year
  Sex: Male

DRUGS (18)
  1. FORTEO [Suspect]
     Indication: OSTEOPOROSIS
     Dosage: 20 UG, DAILY (1/D)
     Route: 058
     Dates: start: 20070712
  2. LAMICTAL [Concomitant]
  3. BACLOFEN [Concomitant]
  4. TOPAMAX [Concomitant]
  5. MAXERAN [Concomitant]
  6. SABRIL [Concomitant]
  7. GLUCOSAMINE [Concomitant]
  8. FLAVOXATE HYDROCHLORIDE COATED TAB [Concomitant]
  9. RANITIDINE [Concomitant]
  10. NAPROXEN [Concomitant]
  11. CALCIUM GLUCONATE [Concomitant]
  12. ADVAIR DISKUS 100/50 [Concomitant]
  13. CELEXA [Concomitant]
  14. SODIUM CHLORIDE 0.9% [Concomitant]
  15. LASIX [Concomitant]
  16. TRANSDERM PATCH [Concomitant]
     Route: 062
  17. VALIUM [Concomitant]
  18. MIDAZOLAM HCL [Concomitant]
     Dosage: UNK, AS NEEDED

REACTIONS (1)
  - GRAND MAL CONVULSION [None]
